FAERS Safety Report 11762978 (Version 1)
Quarter: 2015Q4

REPORT INFORMATION
  Report Type: Spontaneous
  Country: ES (occurrence: ES)
  Receive Date: 20151120
  Receipt Date: 20151120
  Transmission Date: 20160304
  Serious: Yes (Other)
  Sender: FDA-Public Use
  Company Number: ES-JNJFOC-20151113420

PATIENT
  Age: 49 Year
  Sex: Female

DRUGS (2)
  1. MINOXIDIL 5% [Suspect]
     Active Substance: MINOXIDIL
     Route: 065
  2. MINOXIDIL 5% [Suspect]
     Active Substance: MINOXIDIL
     Indication: PRODUCT USED FOR UNKNOWN INDICATION
     Dosage: 5%
     Route: 065

REACTIONS (2)
  - Occupational asthma [Unknown]
  - Skin lesion [None]
